FAERS Safety Report 24434004 (Version 1)
Quarter: 2024Q4

REPORT INFORMATION
  Report Type: Spontaneous
  Country: US (occurrence: US)
  Receive Date: 20241014
  Receipt Date: 20241014
  Transmission Date: 20250114
  Serious: Yes (Other)
  Sender: SANDOZ
  Company Number: US-002147023-NVSC2022US242376

PATIENT
  Sex: Female

DRUGS (6)
  1. SODIUM AUROTIOSULFATE [Suspect]
     Active Substance: SODIUM AUROTIOSULFATE
     Indication: Cataract
     Dosage: UNK
     Route: 065
  2. LEVOTHYROXINE SODIUM [Suspect]
     Active Substance: LEVOTHYROXINE SODIUM
     Indication: Product used for unknown indication
     Dosage: UNK
     Route: 065
  3. RECLAST [Suspect]
     Active Substance: ZOLEDRONIC ACID
     Indication: Product used for unknown indication
     Dosage: 5 MG, QD
     Route: 041
     Dates: start: 20171128
  4. RECLAST [Suspect]
     Active Substance: ZOLEDRONIC ACID
     Dosage: UNK
     Route: 041
     Dates: start: 2018
  5. CALCIUM [Concomitant]
     Active Substance: CALCIUM
     Indication: Product used for unknown indication
     Dosage: UNK
     Route: 065
  6. VITAMIN D NOS [Concomitant]
     Active Substance: CHOLECALCIFEROL\ERGOCALCIFEROL
     Indication: Product used for unknown indication
     Dosage: UNK
     Route: 065

REACTIONS (12)
  - Cerebral haemorrhage [Unknown]
  - Hip fracture [Unknown]
  - Cataract [Unknown]
  - Osteoporosis [Unknown]
  - Wrist fracture [Unknown]
  - Gait disturbance [Recovered/Resolved]
  - Fall [Unknown]
  - Dysstasia [Unknown]
  - Scab [Unknown]
  - Fear of injection [Unknown]
  - Pain [Unknown]
  - Lethargy [Unknown]
